FAERS Safety Report 4548736-6 (Version None)
Quarter: 2004Q4

REPORT INFORMATION
  Report Type: 
  Country: None (occurrence: None)
  Receive Date: 20041220
  Receipt Date: 20031223
  Transmission Date: 20050328
  Serious: Yes (Hospitalization, Other)
  Sender: FDA-Public Use
  Company Number: USA031255340

PATIENT
  Age: 72 Year
  Sex: Female
  Weight: 61 kg

DRUGS (4)
  1. HUMULIN 70/30 [Suspect]
     Indication: DIABETES MELLITUS
     Dosage: 30 U/DAY
     Dates: start: 20020101
  2. COUMADIN [Concomitant]
  3. SYNTHROID [Concomitant]
  4. DEMADEX [Concomitant]

REACTIONS (6)
  - BLOOD GLUCOSE INCREASED [None]
  - DIZZINESS [None]
  - HYPOGLYCAEMIC COMA [None]
  - INJECTION SITE MASS [None]
  - OEDEMA [None]
  - SENSORY DISTURBANCE [None]
